FAERS Safety Report 7379044-6 (Version None)
Quarter: 2011Q1

REPORT INFORMATION
  Report Type: 
  Country: None (occurrence: None)
  Receive Date: 20110328
  Receipt Date: 20110323
  Transmission Date: 20110831
  Serious: Yes (Life-Threatening, Hospitalization)
  Sender: FDA-Public Use
  Company Number: ES-ROCHE-758268

PATIENT
  Sex: Male
  Weight: 77 kg

DRUGS (4)
  1. OXALIPLATIN [Suspect]
     Indication: COLON CANCER STAGE III
     Route: 042
     Dates: start: 20110113
  2. XELODA [Suspect]
     Indication: COLON CANCER STAGE III
     Route: 048
     Dates: start: 20110113, end: 20110121
  3. AMLODIPINE [Concomitant]
     Route: 048
     Dates: start: 20080101
  4. ASPIRIN [Concomitant]
     Route: 048
     Dates: start: 20070101

REACTIONS (5)
  - SEPTIC SHOCK [None]
  - MULTI-ORGAN FAILURE [None]
  - TOXICITY TO VARIOUS AGENTS [None]
  - ENTERITIS [None]
  - ATELECTASIS [None]
